FAERS Safety Report 7168197-0 (Version None)
Quarter: 2010Q4

REPORT INFORMATION
  Report Type: 
  Country: None (occurrence: None)
  Receive Date: 20101216
  Receipt Date: 20101208
  Transmission Date: 20110411
  Serious: Yes (Other)
  Sender: FDA-Public Use
  Company Number: DE-PFIZER INC-2010167624

PATIENT
  Age: 85 Year
  Sex: Female

DRUGS (2)
  1. TAFIL [Suspect]
     Indication: DYSTHYMIC DISORDER
     Dosage: 1 MG, 1X/DAY
     Dates: start: 19920101
  2. LEXOTANIL [Suspect]
     Indication: DYSTHYMIC DISORDER

REACTIONS (4)
  - DRUG DEPENDENCE [None]
  - INSOMNIA [None]
  - PARAPARESIS [None]
  - POLYNEUROPATHY [None]
